FAERS Safety Report 10738056 (Version 1)
Quarter: 2015Q1

REPORT INFORMATION
  Report Type: Spontaneous
  Country: US (occurrence: US)
  Receive Date: 20150126
  Receipt Date: 20150126
  Transmission Date: 20150721
  Serious: No
  Sender: FDA-Public Use
  Company Number: US-DYAX CORP.-2014DX000054

PATIENT
  Age: 16 Year

DRUGS (2)
  1. KALBITOR [Suspect]
     Active Substance: ECALLANTIDE
     Indication: HEREDITARY ANGIOEDEMA
     Route: 065
  2. OTHER THERAPIES (UNSPECIFIED) [Concomitant]
     Indication: HEREDITARY ANGIOEDEMA
     Route: 065

REACTIONS (11)
  - Fatigue [Unknown]
  - Decreased activity [Unknown]
  - Emotional distress [Unknown]
  - Anxiety [Unknown]
  - Malaise [Unknown]
  - Insomnia [Unknown]
  - Gait disturbance [Unknown]
  - Depressed mood [Unknown]
  - Swelling [Unknown]
  - Pain [Unknown]
  - Hereditary angioedema [Unknown]
